FAERS Safety Report 23687772 (Version 4)
Quarter: 2024Q2

REPORT INFORMATION
  Report Type: Spontaneous
  Country: US (occurrence: US)
  Receive Date: 20240329
  Receipt Date: 20240501
  Transmission Date: 20240716
  Serious: Yes (Life-Threatening, Hospitalization, Other)
  Sender: FDA-Public Use
  Company Number: US-PFIZER INC-PV202400041825

PATIENT
  Age: 37 Year
  Sex: Female

DRUGS (1)
  1. EPINEPHRINE [Suspect]
     Active Substance: EPINEPHRINE
     Indication: Local anaesthesia
     Dosage: 10 MG
     Route: 058

REACTIONS (4)
  - Incorrect dose administered [Unknown]
  - Stress cardiomyopathy [Recovering/Resolving]
  - Ischaemic stroke [Unknown]
  - Visual impairment [Unknown]
